FAERS Safety Report 7551292-1 (Version None)
Quarter: 2011Q2

REPORT INFORMATION
  Report Type: 
  Country: None (occurrence: None)
  Receive Date: 20110616
  Receipt Date: 20110613
  Transmission Date: 20111010
  Serious: Yes (Death, Other)
  Sender: FDA-Public Use
  Company Number: PHHY2011CA50992

PATIENT
  Sex: Female

DRUGS (16)
  1. VITAMIN D [Concomitant]
     Dosage: 1000 U, UNK
  2. WARFARIN SODIUM [Concomitant]
     Dosage: 4 MG, UNK
  3. VITAMIN B-12 [Concomitant]
     Dosage: 500 MG, UNK
  4. ZOLEDRONIC ACID [Suspect]
     Indication: OSTEOPOROSIS
     Dosage: 5 MG, / YEARLY
     Route: 042
     Dates: start: 20090609
  5. LACTULOSE [Concomitant]
     Dosage: 30 MG, UNK
  6. LASIX [Concomitant]
     Dosage: 20 MG, UNK
  7. PERCOCET [Concomitant]
  8. TOLOXIM [Concomitant]
  9. CALCIUM CARBONATE [Concomitant]
     Dosage: 650 MG, UNK
  10. ZOLEDRONIC ACID [Suspect]
     Route: 042
     Dates: start: 20100607
  11. TYLENOL-500 [Concomitant]
     Dosage: 500 MG, UNK
  12. ASCORBIC ACID [Concomitant]
     Dosage: 500 MG, UNK
  13. SOFLAX [Concomitant]
     Dosage: 200 MG, UNK
  14. MOTILIUM [Concomitant]
     Dosage: 20 MG, BID
  15. PANTOPRAZOLE SODIUM [Concomitant]
     Dosage: 40 MG, UNK
  16. TIAZAC [Concomitant]
     Dosage: 360 MG, UNK

REACTIONS (6)
  - CARDIAC FAILURE [None]
  - CARDIAC FAILURE CONGESTIVE [None]
  - FALL [None]
  - PNEUMONIA [None]
  - HIP FRACTURE [None]
  - MYOCARDIAL INFARCTION [None]
